FAERS Safety Report 9332286 (Version 1)
Quarter: 2013Q2

REPORT INFORMATION
  Report Type: Spontaneous
  Country: NL (occurrence: NL)
  Receive Date: 20130606
  Receipt Date: 20130606
  Transmission Date: 20140414
  Serious: Yes (Life-Threatening, Hospitalization)
  Sender: FDA-Public Use
  Company Number: NL-009507513-1305NLD016192

PATIENT
  Age: 20 Year
  Sex: Female
  Weight: 65 kg

DRUGS (3)
  1. IMPLANON [Suspect]
     Indication: CONTRACEPTION
     Dosage: TIMES PER 1 DF
     Route: 059
     Dates: start: 201206
  2. ISONIAZID [Interacting]
     Dosage: 300 MG, ONCE A DAY 1.5 TABLET
     Route: 048
     Dates: start: 20130131
  3. DANAZOL [Interacting]
     Indication: HEREDITARY ANGIOEDEMA
     Dosage: 200 MG, 1 TIMES PER 1 DAYS
     Dates: start: 201209

REACTIONS (2)
  - Angioedema [Recovered/Resolved]
  - Drug interaction [Recovered/Resolved]
